FAERS Safety Report 21349459 (Version 1)
Quarter: 2022Q3

REPORT INFORMATION
  Report Type: Spontaneous
  Country: US (occurrence: US)
  Receive Date: 20220919
  Receipt Date: 20220919
  Transmission Date: 20221027
  Serious: Yes (Hospitalization)
  Sender: FDA-Public Use
  Company Number: US-MYLANLABS-2022M1093733

PATIENT
  Age: 50 Year
  Sex: Female

DRUGS (7)
  1. NORETHINDRONE [Suspect]
     Active Substance: NORETHINDRONE
     Indication: Abnormal uterine bleeding
     Dosage: UNK
     Route: 065
     Dates: start: 2018
  2. CONJUGATED ESTROGENS [Suspect]
     Active Substance: ESTROGENS, CONJUGATED
     Indication: Vaginal haemorrhage
     Dosage: UNK
     Route: 042
     Dates: start: 2018
  3. MEGESTROL ACETATE [Suspect]
     Active Substance: MEGESTROL ACETATE
     Indication: Vaginal haemorrhage
     Dosage: UNK
     Route: 065
     Dates: start: 2018
  4. OLAPARIB [Suspect]
     Active Substance: OLAPARIB
     Indication: Uterine leiomyosarcoma
     Dosage: 300 MILLIGRAM, BID
     Route: 065
     Dates: start: 201912
  5. OLAPARIB [Suspect]
     Active Substance: OLAPARIB
     Indication: Metastases to lung
  6. GEMCITABINE [Concomitant]
     Active Substance: GEMCITABINE
     Indication: Uterine leiomyosarcoma
     Dosage: UNK
     Route: 065
     Dates: start: 201901
  7. DOCETAXEL [Concomitant]
     Active Substance: DOCETAXEL
     Indication: Uterine leiomyosarcoma
     Dosage: UNK
     Route: 065
     Dates: start: 201901

REACTIONS (2)
  - Drug ineffective for unapproved indication [Unknown]
  - Off label use [Unknown]
